FAERS Safety Report 21860298 (Version 3)
Quarter: 2023Q1

REPORT INFORMATION
  Report Type: Spontaneous
  Country: US (occurrence: US)
  Receive Date: 20230113
  Receipt Date: 20230119
  Transmission Date: 20230417
  Serious: No
  Sender: FDA-Public Use
  Company Number: US-PFIZER INC-202300014765

PATIENT
  Age: 69 Year
  Sex: Female

DRUGS (1)
  1. PAXLOVID [Suspect]
     Active Substance: NIRMATRELVIR\RITONAVIR
     Indication: COVID-19 treatment
     Dosage: UNK
     Dates: start: 20230109, end: 20230111

REACTIONS (5)
  - Rash pruritic [Unknown]
  - Urticaria [Recovered/Resolved]
  - Rash erythematous [Unknown]
  - Sleep disorder due to general medical condition, insomnia type [Unknown]
  - Rash [Unknown]

NARRATIVE: CASE EVENT DATE: 20230101
